FAERS Safety Report 8999372 (Version 2)
Quarter: 2013Q1

REPORT INFORMATION
  Report Type: Spontaneous
  Country: JP (occurrence: JP)
  Receive Date: 20130103
  Receipt Date: 20130110
  Transmission Date: 20140127
  Serious: Yes (Other)
  Sender: FDA-Public Use
  Company Number: JP-PFIZER INC-2012329911

PATIENT
  Age: 72 Year
  Sex: Male
  Weight: 63.4 kg

DRUGS (4)
  1. CISPLATIN [Suspect]
     Indication: BLADDER CANCER
     Dosage: UNK
     Route: 042
     Dates: start: 201109
  2. CISPLATIN [Suspect]
     Indication: CHEMOTHERAPY
  3. GEMCITABINE [Suspect]
     Indication: BLADDER CANCER
     Dosage: UNK
     Route: 042
     Dates: start: 201109
  4. GEMCITABINE [Suspect]
     Indication: CHEMOTHERAPY

REACTIONS (1)
  - Renal salt-wasting syndrome [Recovered/Resolved]
